FAERS Safety Report 12784371 (Version 1)
Quarter: 2016Q3

REPORT INFORMATION
  Report Type: Spontaneous
  Country: DE (occurrence: DE)
  Receive Date: 20160927
  Receipt Date: 20160927
  Transmission Date: 20161109
  Serious: Yes (Other)
  Sender: FDA-Public Use
  Company Number: DE-BEH-200914770

PATIENT
  Age: 67 Year
  Sex: Male

DRUGS (1)
  1. SANDOGLOBULIN [Suspect]
     Active Substance: HUMAN IMMUNOGLOBULIN G
     Dosage: DAILY DOSE QUANTITY: 20, DAILY DOSE UNIT: G
     Route: 042

REACTIONS (4)
  - Chills [Unknown]
  - Eosinophilia [Recovered/Resolved]
  - Leukopenia [Recovered/Resolved]
  - Infusion related reaction [None]
